FAERS Safety Report 14746509 (Version 2)
Quarter: 2019Q1

REPORT INFORMATION
  Report Type: Spontaneous
  Country: US (occurrence: US)
  Receive Date: 20180411
  Receipt Date: 20190327
  Transmission Date: 20190417
  Serious: Yes (Death, Hospitalization, Other)
  Sender: FDA-Public Use
  Company Number: US-ASTRAZENECA-2018SE43549

PATIENT
  Age: 22335 Day
  Sex: Male
  Weight: 123.3 kg

DRUGS (4)
  1. KOMBIGLYZE XR [Suspect]
     Active Substance: METFORMIN HYDROCHLORIDE\SAXAGLIPTIN HYDROCHLORIDE
     Route: 048
     Dates: start: 201703, end: 201803
  2. ONGLYZA [Suspect]
     Active Substance: SAXAGLIPTIN HYDROCHLORIDE
     Indication: BLOOD GLUCOSE ABNORMAL
     Route: 048
     Dates: start: 20170802, end: 20180430
  3. ONGLYZA [Suspect]
     Active Substance: SAXAGLIPTIN HYDROCHLORIDE
     Indication: BLOOD GLUCOSE ABNORMAL
     Route: 048
     Dates: start: 201703, end: 201803
  4. ONGLYZA [Suspect]
     Active Substance: SAXAGLIPTIN HYDROCHLORIDE
     Indication: BLOOD GLUCOSE ABNORMAL
     Route: 048
     Dates: start: 20170801

REACTIONS (6)
  - Cardiovascular disorder [Unknown]
  - Coronary artery disease [Fatal]
  - Arrhythmia [Fatal]
  - Hypoxia [Fatal]
  - Cardiac failure [Unknown]
  - Cardiac failure congestive [Unknown]

NARRATIVE: CASE EVENT DATE: 20171209
